FAERS Safety Report 7774457-2 (Version None)
Quarter: 2011Q3

REPORT INFORMATION
  Report Type: 
  Country: None (occurrence: None)
  Receive Date: 20110923
  Receipt Date: 20110915
  Transmission Date: 20111222
  Serious: Yes (Hospitalization)
  Sender: FDA-Public Use
  Company Number: JP-ABBOTT-11P-087-0850491-00

PATIENT
  Sex: Female
  Weight: 39 kg

DRUGS (7)
  1. PYDOXAL [Concomitant]
     Indication: ANTIBIOTIC PROPHYLAXIS
     Route: 048
     Dates: start: 20110816, end: 20110913
  2. OMEPRAZOLE [Concomitant]
     Indication: ABDOMINAL PAIN UPPER
     Route: 048
     Dates: start: 20110705
  3. OMEPRAZOLE [Concomitant]
     Dates: start: 20110715, end: 20110728
  4. ELENTAL [Concomitant]
     Indication: BEHCET'S SYNDROME
     Route: 048
     Dates: start: 20110713
  5. ISONIAZID [Concomitant]
     Indication: ANTIBIOTIC PROPHYLAXIS
     Route: 048
     Dates: start: 20110816, end: 20110913
  6. HUMIRA [Suspect]
     Indication: BEHCET'S SYNDROME
     Route: 058
     Dates: start: 20110816, end: 20110816
  7. PREDNISOLONE [Concomitant]
     Indication: BEHCET'S SYNDROME
     Route: 048
     Dates: start: 20110715, end: 20110728

REACTIONS (1)
  - INTESTINAL OBSTRUCTION [None]
